FAERS Safety Report 12543375 (Version 1)
Quarter: 2016Q3

REPORT INFORMATION
  Report Type: Report from Study
  Country: DE (occurrence: DE)
  Receive Date: 20160711
  Receipt Date: 20160711
  Transmission Date: 20161109
  Serious: Yes (Other)
  Sender: FDA-Public Use
  Company Number: DE-BIOGEN-2016BI00261461

PATIENT
  Age: 55 Year
  Sex: Female

DRUGS (6)
  1. ISOPROLOL [Concomitant]
     Indication: HYPERTENSION
     Route: 065
  2. BACLOFEN. [Concomitant]
     Active Substance: BACLOFEN
     Indication: MUSCLE SPASTICITY
     Route: 065
  3. FLUOXITIN [Concomitant]
     Indication: DEPRESSION
     Route: 065
  4. FAMPYRA [Suspect]
     Active Substance: DALFAMPRIDINE
     Indication: GAIT DISTURBANCE
     Route: 048
     Dates: start: 2014
  5. TECFIDERA [Suspect]
     Active Substance: DIMETHYL FUMARATE
     Indication: MULTIPLE SCLEROSIS
     Dosage: 240/120 MG
     Route: 048
     Dates: start: 20160317, end: 20160617
  6. SATIFEX [Concomitant]
     Indication: MUSCLE SPASTICITY
     Route: 065

REACTIONS (8)
  - Cystitis noninfective [Not Recovered/Not Resolved]
  - Diarrhoea [Recovered/Resolved]
  - Lung neoplasm [Not Recovered/Not Resolved]
  - Hypophagia [Not Recovered/Not Resolved]
  - Abdominal pain upper [Recovered/Resolved]
  - Abdominal distension [Not Recovered/Not Resolved]
  - Cyanosis [Not Recovered/Not Resolved]
  - Nausea [Recovered/Resolved]

NARRATIVE: CASE EVENT DATE: 2016
